FAERS Safety Report 7168287-2 (Version None)
Quarter: 2010Q4

REPORT INFORMATION
  Report Type: 
  Country: None (occurrence: None)
  Receive Date: 20101216
  Receipt Date: 20101206
  Transmission Date: 20110411
  Serious: Yes (Life-Threatening, Hospitalization)
  Sender: FDA-Public Use
  Company Number: US-ABBOTT-10P-163-0689716-00

PATIENT
  Sex: Male
  Weight: 107.14 kg

DRUGS (11)
  1. HUMIRA [Suspect]
     Indication: CROHN'S DISEASE
     Route: 058
     Dates: start: 20080208, end: 20091201
  2. HUMIRA [Suspect]
  3. VICODIN [Concomitant]
     Indication: CROHN'S DISEASE
     Dosage: 2-4 PILLS A DAY
     Dates: start: 20070101
  4. PREDNISONE [Concomitant]
     Indication: CROHN'S DISEASE
     Dates: start: 20050101
  5. METRONIDAZOLE [Concomitant]
     Indication: CROHN'S DISEASE
     Dates: start: 20080101
  6. SULFASALAZINE [Concomitant]
     Indication: CROHN'S DISEASE
     Dates: start: 20080101
  7. GLIPIZIDE [Concomitant]
     Indication: DIABETES MELLITUS
     Dates: start: 20080101
  8. GLIBENCLAMIDE [Concomitant]
     Indication: DIABETES MELLITUS
     Dates: start: 20080101
  9. METFORMIN [Concomitant]
     Indication: DIABETES MELLITUS
     Dates: start: 20080101
  10. FERROUS SULFATE [Concomitant]
     Indication: MINERAL SUPPLEMENTATION
     Dates: start: 20080101
  11. CALCIUM [Concomitant]
     Indication: MEDICAL DIET
     Dates: start: 20080101

REACTIONS (2)
  - CARDIOMYOPATHY [None]
  - COAGULATION TIME SHORTENED [None]
